FAERS Safety Report 10490283 (Version 1)
Quarter: 2014Q4

REPORT INFORMATION
  Report Type: Spontaneous
  Country: DE (occurrence: DE)
  Receive Date: 20141002
  Receipt Date: 20141002
  Transmission Date: 20150528
  Serious: Yes (Life-Threatening)
  Sender: FDA-Public Use
  Company Number: DE-TEVA-512897GER

PATIENT
  Sex: Female

DRUGS (1)
  1. LEFLUNOMID 10 MG [Suspect]
     Active Substance: LEFLUNOMIDE
     Indication: RHEUMATIC DISORDER
     Dosage: 10 MILLIGRAM DAILY;
     Dates: start: 2010

REACTIONS (3)
  - Panic attack [Not Recovered/Not Resolved]
  - Cough [Not Recovered/Not Resolved]
  - Asphyxia [Not Recovered/Not Resolved]
